FAERS Safety Report 4402755-9 (Version None)
Quarter: 2004Q3

REPORT INFORMATION
  Report Type: 
  Country: None (occurrence: None)
  Receive Date: 20040720
  Receipt Date: 20040720
  Transmission Date: 20050211
  Serious: No
  Sender: FDA-Public Use
  Company Number: None

PATIENT
  Age: 64 Year
  Sex: Female
  Weight: 71.2147 kg

DRUGS (2)
  1. REMICADE [Suspect]
     Indication: RHEUMATOID ARTHRITIS
     Dosage: 300 MG Q2 MONTHS OCCLUSIVE DR
     Dates: start: 20031015, end: 20031120
  2. METHOTRECATE [Concomitant]

REACTIONS (1)
  - BLASTOMYCOSIS [None]
